FAERS Safety Report 5005960-6 (Version None)
Quarter: 2006Q2

REPORT INFORMATION
  Report Type: 
  Country: None (occurrence: None)
  Receive Date: 20060518
  Receipt Date: 20060516
  Transmission Date: 20061013
  Serious: Yes (Other)
  Sender: FDA-Public Use
  Company Number: ES-BOEHRINGER INGELHEIM PHARMACEUTICALS, INC.-2006-BP-05558YA

PATIENT
  Sex: Male
  Weight: 66 kg

DRUGS (4)
  1. OMNIC OCAS ORODISPERSABLE CR [Suspect]
     Indication: BENIGN PROSTATIC HYPERPLASIA
     Route: 048
     Dates: start: 20060125, end: 20060209
  2. MASDIL [Concomitant]
  3. ZOCOR [Concomitant]
  4. ZAMENE [Concomitant]

REACTIONS (1)
  - OEDEMA PERIPHERAL [None]
